FAERS Safety Report 16967922 (Version 2)
Quarter: 2019Q4

REPORT INFORMATION
  Report Type: Spontaneous
  Country: RU (occurrence: RU)
  Receive Date: 20191028
  Receipt Date: 20191106
  Transmission Date: 20200122
  Serious: Yes (Other)
  Sender: FDA-Public Use
  Company Number: RU-GILEAD-2019-0434664

PATIENT
  Age: 58 Year
  Sex: Male

DRUGS (2)
  1. DACLATASVIR. [Suspect]
     Active Substance: DACLATASVIR
     Indication: CHRONIC HEPATITIS C
     Dosage: UNK
     Route: 065
  2. SOFOSBUVIR [Suspect]
     Active Substance: SOFOSBUVIR
     Indication: CHRONIC HEPATITIS C
     Dosage: UNK
     Route: 065

REACTIONS (5)
  - Genotype drug resistance test positive [Unknown]
  - Off label use [Recovered/Resolved]
  - Drug ineffective [Unknown]
  - Liver transplant [Recovered/Resolved]
  - Hepatitis C [Unknown]

NARRATIVE: CASE EVENT DATE: 20180502
